FAERS Safety Report 18910826 (Version 1)
Quarter: 2021Q1

REPORT INFORMATION
  Report Type: Spontaneous
  Country: DE (occurrence: DE)
  Receive Date: 20210218
  Receipt Date: 20210218
  Transmission Date: 20210420
  Serious: Yes (Other)
  Sender: FDA-Public Use
  Company Number: DE-PFIZER INC-2021121299

PATIENT
  Age: 65 Year
  Sex: Male
  Weight: 82 kg

DRUGS (1)
  1. VYNDAQEL [Suspect]
     Active Substance: TAFAMIDIS MEGLUMINE
     Dosage: UNK
     Dates: start: 202012

REACTIONS (6)
  - Trichoglossia [Unknown]
  - Asthenia [Unknown]
  - Dyspnoea [Unknown]
  - Ocular discomfort [Unknown]
  - Malaise [Unknown]
  - Middle insomnia [Unknown]
